FAERS Safety Report 4361244-0 (Version None)
Quarter: 2004Q2

REPORT INFORMATION
  Report Type: 
  Country: None (occurrence: None)
  Receive Date: 20040517
  Receipt Date: 20040505
  Transmission Date: 20050107
  Serious: No
  Sender: FDA-Public Use
  Company Number: 04P-056-0259795-00

PATIENT
  Age: 7 Year
  Sex: Male

DRUGS (2)
  1. DEPAKENE [Suspect]
     Indication: EPILEPSY
     Dosage: 250 MG, IN AM, ORAL;  500 MG, IN PM, ORAL
     Route: 048
     Dates: start: 20021201, end: 20030825
  2. DEPAKENE [Suspect]
     Indication: EPILEPSY
     Dosage: 250 MG, IN AM, ORAL;  500 MG, IN PM, ORAL
     Route: 048
     Dates: start: 20021201, end: 20030825

REACTIONS (4)
  - ABNORMAL BEHAVIOUR [None]
  - BRADYPHRENIA [None]
  - CLUMSINESS [None]
  - ELECTROENCEPHALOGRAM ABNORMAL [None]
